FAERS Safety Report 5911902-9 (Version None)
Quarter: 2008Q4

REPORT INFORMATION
  Report Type: 
  Country: None (occurrence: None)
  Receive Date: 20081003
  Receipt Date: 20080919
  Transmission Date: 20090506
  Serious: Yes (Hospitalization)
  Sender: FDA-Public Use
  Company Number: 2008BI021571

PATIENT
  Age: 52 Year
  Sex: Female

DRUGS (10)
  1. AVONEX [Suspect]
     Indication: MULTIPLE SCLEROSIS
     Dosage: 30 UG;QW; IM
     Route: 030
     Dates: start: 20080301, end: 20080101
  2. MOTILIUM (CON.) [Concomitant]
  3. BACLOFEN (CON.) [Concomitant]
  4. HIDANTAL (CON.) [Concomitant]
  5. PLASIL (CON.) [Concomitant]
  6. OMEPRAZOLE (CON.) [Concomitant]
  7. CAPTOPRIL (CON.) [Concomitant]
  8. BROMOPRIDE (CON.) [Concomitant]
  9. MINERAL OIL (CON.) [Concomitant]
  10. CLEXANE (CON.) [Concomitant]

REACTIONS (12)
  - ABDOMINAL PAIN [None]
  - CHILLS [None]
  - CONDITION AGGRAVATED [None]
  - DEPRESSION [None]
  - DISORIENTATION [None]
  - DYSPHAGIA [None]
  - HYPERTENSION [None]
  - MEMORY IMPAIRMENT [None]
  - MULTIPLE SCLEROSIS [None]
  - PYREXIA [None]
  - STRESS [None]
  - TREMOR [None]
